FAERS Safety Report 8418189-6 (Version None)
Quarter: 2012Q2

REPORT INFORMATION
  Report Type: 
  Country: None (occurrence: None)
  Receive Date: 20120531
  Receipt Date: 20120521
  Transmission Date: 20120825
  Serious: Yes (Hospitalization)
  Sender: FDA-Public Use
  Company Number: NSR_00557_2012

PATIENT
  Age: 39 Year
  Sex: Female
  Weight: 51 kg

DRUGS (2)
  1. ALPRAZOLAM [Suspect]
     Indication: DEPRESSION
     Dosage: (DF [UP TO 45 MG]), (DF)
  2. VENLAFAXINE [Suspect]
     Indication: DEPRESSION
     Dosage: (DF [ UP TO 7.5 G]) (DF)

REACTIONS (5)
  - HEARING IMPAIRED [None]
  - URINARY RETENTION [None]
  - ALTERED STATE OF CONSCIOUSNESS [None]
  - SEROTONIN SYNDROME [None]
  - HYPOGLYCAEMIA [None]
